FAERS Safety Report 9035607 (Version 1)
Quarter: 2013Q1

REPORT INFORMATION
  Report Type: Report from Study
  Country: US (occurrence: US)
  Receive Date: 20130129
  Receipt Date: 20130129
  Transmission Date: 20140127
  Serious: No
  Sender: FDA-Public Use
  Company Number: US-ABBOTT-12P-163-0914214-00

PATIENT
  Sex: Female
  Weight: 62.2 kg

DRUGS (6)
  1. HUMIRA 40 MG/0.8 ML PEN [Suspect]
     Indication: RHEUMATOID ARTHRITIS
     Route: 058
     Dates: start: 201106, end: 201109
  2. ARAVA [Concomitant]
     Indication: RHEUMATOID ARTHRITIS
  3. FOLIC ACID [Concomitant]
     Indication: RHEUMATOID ARTHRITIS
  4. NAPROXEN [Concomitant]
     Indication: PAIN
  5. PREDNISONE [Concomitant]
     Indication: RHEUMATOID ARTHRITIS
  6. FERROUS SULFATE [Concomitant]
     Indication: MINERAL SUPPLEMENTATION

REACTIONS (3)
  - Ovarian cyst ruptured [Recovered/Resolved]
  - Muscle spasms [Recovered/Resolved]
  - Tumour marker increased [Not Recovered/Not Resolved]
